FAERS Safety Report 6770851-7 (Version None)
Quarter: 2010Q2

REPORT INFORMATION
  Report Type: 
  Country: None (occurrence: None)
  Receive Date: 20100614
  Receipt Date: 20100614
  Transmission Date: 20101027
  Serious: Yes (Hospitalization)
  Sender: FDA-Public Use
  Company Number: None

PATIENT
  Sex: Male
  Weight: 48.5 kg

DRUGS (7)
  1. CISPLATIN [Suspect]
     Dosage: 380 MG
     Dates: end: 20100524
  2. TAXOL [Suspect]
     Dosage: 190 MG
     Dates: end: 20100524
  3. CATAPRES-TTS-1 [Concomitant]
  4. HYCET [Concomitant]
  5. LORTAB [Concomitant]
  6. METOPROLOL [Concomitant]
  7. ROBITUSSIN ALLERGY AND COUGH [Concomitant]

REACTIONS (5)
  - ANAEMIA [None]
  - BODY TEMPERATURE INCREASED [None]
  - DEEP VEIN THROMBOSIS [None]
  - MEDICAL DEVICE COMPLICATION [None]
  - OEDEMA PERIPHERAL [None]
